FAERS Safety Report 17711458 (Version 1)
Quarter: 2020Q2

REPORT INFORMATION
  Report Type: Spontaneous
  Country: US (occurrence: US)
  Receive Date: 20200424
  Receipt Date: 20200424
  Transmission Date: 20200714
  Serious: No
  Sender: FDA-Public Use
  Company Number: None

PATIENT
  Age: 41 Year
  Sex: Male
  Weight: 103.5 kg

DRUGS (1)
  1. COLESEVELAM HYDROCHLORIDE. [Suspect]
     Active Substance: COLESEVELAM HYDROCHLORIDE
     Indication: BLOOD CHOLESTEROL
     Dosage: ?          QUANTITY:180 TABLET(S);?
     Route: 048
     Dates: start: 20200417, end: 20200419

REACTIONS (6)
  - Muscle spasms [None]
  - Gastritis [None]
  - Diarrhoea [None]
  - Migraine [None]
  - Nausea [None]
  - Pharyngitis [None]

NARRATIVE: CASE EVENT DATE: 20200417
